FAERS Safety Report 5313624-4 (Version None)
Quarter: 2007Q2

REPORT INFORMATION
  Report Type: 
  Country: None (occurrence: None)
  Receive Date: 20070501
  Receipt Date: 20070426
  Transmission Date: 20071010
  Serious: Yes (Disabling)
  Sender: FDA-Public Use
  Company Number: 2007UW04051

PATIENT
  Sex: Female
  Weight: 75 kg

DRUGS (2)
  1. SEROQUEL [Suspect]
     Indication: BIPOLAR DISORDER
     Dosage: TITRATION PACK
     Route: 048
     Dates: start: 20070219, end: 20070301
  2. SEROQUEL [Suspect]
     Indication: DEPRESSION
     Dosage: TITRATION PACK
     Route: 048
     Dates: start: 20070219, end: 20070301

REACTIONS (1)
  - FATIGUE [None]
